FAERS Safety Report 7474607-1 (Version None)
Quarter: 2011Q2

REPORT INFORMATION
  Report Type: 
  Country: None (occurrence: None)
  Receive Date: 20110503
  Receipt Date: 20110418
  Transmission Date: 20111010
  Serious: Yes (Hospitalization, Disabling, Other)
  Sender: FDA-Public Use
  Company Number: 031310

PATIENT
  Age: 72 Year
  Sex: Male
  Weight: 77 kg

DRUGS (10)
  1. CIMZIA [Suspect]
     Indication: RHEUMATOID ARTHRITIS
     Dosage: (200 MG 1X/2 WEEKS SUBCUTANEOUS)
     Route: 058
     Dates: start: 20100817, end: 20101108
  2. CODEINE PHOSPHATE [Concomitant]
  3. FOLIC ACID [Concomitant]
  4. METFORMIN [Concomitant]
  5. ACETAMINOPHEN [Concomitant]
  6. SYMBICORT [Concomitant]
  7. METHOTREXATE [Concomitant]
  8. ALENDRONIC ACID [Concomitant]
  9. AZITHROMYCIN [Concomitant]
  10. ADCAL-D3 [Concomitant]

REACTIONS (2)
  - OSTEOMYELITIS [None]
  - DEVICE RELATED INFECTION [None]
